FAERS Safety Report 15219842 (Version 2)
Quarter: 2021Q3

REPORT INFORMATION
  Report Type: Spontaneous
  Country: DE (occurrence: DE)
  Receive Date: 20180731
  Receipt Date: 20210731
  Transmission Date: 20211014
  Serious: Yes (Hospitalization, Other)
  Sender: FDA-Public Use
  Company Number: DE-DRREDDYS-GER/GER/18/0102449

PATIENT
  Age: 34 Year
  Sex: Female

DRUGS (6)
  1. LETROZOLE. [Suspect]
     Active Substance: LETROZOLE
     Indication: ASSISTED REPRODUCTIVE TECHNOLOGY
  2. OVALEAP [Suspect]
     Active Substance: FOLLITROPIN ALFA
     Indication: MANAGEMENT OF REPRODUCTION
     Dosage: 137,5 ? 162,5 IE (STEP?UP)
     Route: 065
  3. CETROTID [Suspect]
     Active Substance: CETRORELIX ACETATE
     Indication: MANAGEMENT OF REPRODUCTION
  4. OVALEAP [Suspect]
     Active Substance: FOLLITROPIN ALFA
     Indication: ASSISTED REPRODUCTIVE TECHNOLOGY
  5. TRIPTOFEM [Suspect]
     Active Substance: TRIPTORELIN ACETATE
     Indication: MANAGEMENT OF REPRODUCTION
     Dosage: 2 AMPULLEN (AMPOULES)
     Route: 065
  6. OVITRELLE [Suspect]
     Active Substance: CHORIOGONADOTROPIN ALFA
     Indication: ASSISTED REPRODUCTIVE TECHNOLOGY

REACTIONS (4)
  - Haematocrit increased [Recovered/Resolved]
  - Ovarian hyperstimulation syndrome [Recovered/Resolved]
  - Ovarian hyperstimulation syndrome [Recovered/Resolved]
  - Ascites [Recovered/Resolved]

NARRATIVE: CASE EVENT DATE: 20180615
